FAERS Safety Report 5094966-7 (Version None)
Quarter: 2006Q3

REPORT INFORMATION
  Report Type: 
  Country: None (occurrence: None)
  Receive Date: 20060901
  Receipt Date: 20060809
  Transmission Date: 20061208
  Serious: Yes (Disabling)
  Sender: FDA-Public Use
  Company Number: PHEH2006US10148

PATIENT
  Age: 12 Year
  Sex: Female

DRUGS (3)
  1. FOCALIN XR [Suspect]
     Indication: ATTENTION DEFICIT/HYPERACTIVITY DISORDER
     Dosage: 5 MG, QD
     Route: 048
     Dates: start: 20060711
  2. MULTIVITAMIN [Concomitant]
     Dosage: 0.5 MG, QD
     Route: 048
     Dates: start: 20060620, end: 20060720
  3. DENTAL TREATMENT [Concomitant]
     Dosage: 1.1 %, UNK
     Route: 004
     Dates: start: 20060711, end: 20060811

REACTIONS (3)
  - MICTURITION URGENCY [None]
  - POLLAKIURIA [None]
  - URINARY INCONTINENCE [None]
